FAERS Safety Report 19296727 (Version 2)
Quarter: 2021Q2

REPORT INFORMATION
  Report Type: Spontaneous
  Country: US (occurrence: US)
  Receive Date: 20210524
  Receipt Date: 20210617
  Transmission Date: 20210717
  Serious: No
  Sender: FDA-Public Use
  Company Number: US-GW PHARMA-202105USGW02447

PATIENT

DRUGS (2)
  1. EPIDIOLEX [Suspect]
     Active Substance: CANNABIDIOL
     Indication: EPILEPSY
     Dosage: 600 MILLIGRAM
     Route: 048
     Dates: start: 20200616
  2. EPIDIOLEX [Suspect]
     Active Substance: CANNABIDIOL
     Indication: EPILEPSY
     Dosage: 300 MILLIGRAM
     Route: 048
     Dates: start: 20200226, end: 20200615

REACTIONS (2)
  - Emergency care [Unknown]
  - Weight abnormal [Unknown]

NARRATIVE: CASE EVENT DATE: 2021
